FAERS Safety Report 18951141 (Version 1)
Quarter: 2021Q1

REPORT INFORMATION
  Report Type: Spontaneous
  Country: FR (occurrence: FR)
  Receive Date: 20210228
  Receipt Date: 20210228
  Transmission Date: 20210420
  Serious: Yes (Other)
  Sender: FDA-Public Use
  Company Number: FR-B.I. PHARMACEUTICALS,INC./RIDGEFIELD-2021-BI-084543

PATIENT
  Age: 56 Year
  Sex: Female

DRUGS (18)
  1. GILOTRIF [Suspect]
     Active Substance: AFATINIB
     Dosage: 40 MG, DAY, AFTER 2 WEEK
  2. GEMCITABINE. [Suspect]
     Active Substance: GEMCITABINE
     Dosage: 10 CYCLES
     Dates: start: 201311, end: 201407
  3. VINORELBINE [Suspect]
     Active Substance: VINORELBINE TARTRATE
     Indication: LUNG ADENOCARCINOMA
     Dosage: UNK
     Route: 065
     Dates: start: 200612, end: 201502
  4. DOCETAXEL. [Suspect]
     Active Substance: DOCETAXEL
     Indication: LUNG ADENOCARCINOMA
     Dosage: UNK
     Route: 065
     Dates: start: 200612, end: 201502
  5. ERLOTINIB [Suspect]
     Active Substance: ERLOTINIB
     Indication: LUNG ADENOCARCINOMA
     Dosage: UNK
     Route: 065
     Dates: start: 200612, end: 201502
  6. ATEZOLIZUMAB. [Suspect]
     Active Substance: ATEZOLIZUMAB
     Indication: LUNG ADENOCARCINOMA
     Dosage: SIX CYCLES
     Route: 065
     Dates: start: 201808, end: 201812
  7. PEMETREXED. [Suspect]
     Active Substance: PEMETREXED
     Dosage: 10 CYCLES
     Dates: start: 201204, end: 201308
  8. GEFITINIB. [Suspect]
     Active Substance: GEFITINIB
     Indication: LUNG ADENOCARCINOMA
     Dosage: UNK
     Route: 065
     Dates: start: 200612, end: 201502
  9. PACLITAXEL. [Suspect]
     Active Substance: PACLITAXEL
     Indication: LUNG ADENOCARCINOMA
     Dosage: 11 CYCLES WEEKLY
     Route: 065
     Dates: start: 201408, end: 201411
  10. GILOTRIF [Suspect]
     Active Substance: AFATINIB
     Dosage: 40 MG, DAY, AFTER 2 WEEK
     Route: 065
     Dates: end: 201703
  11. GILOTRIF [Suspect]
     Active Substance: AFATINIB
     Dosage: 40 MG, DAY, AFTER 1 MONTH
  12. GILOTRIF [Suspect]
     Active Substance: AFATINIB
     Dates: start: 201804
  13. CARBOPLATIN. [Suspect]
     Active Substance: CARBOPLATIN
     Indication: LUNG ADENOCARCINOMA
     Dosage: UNK
     Route: 065
     Dates: start: 200612, end: 201502
  14. GILOTRIF [Suspect]
     Active Substance: AFATINIB
     Indication: LUNG ADENOCARCINOMA
     Route: 065
     Dates: start: 201502
  15. GILOTRIF [Suspect]
     Active Substance: AFATINIB
     Dates: start: 201710
  16. GEMCITABINE. [Suspect]
     Active Substance: GEMCITABINE
     Indication: PRODUCT USED FOR UNKNOWN INDICATION
     Dosage: 3 CYCLES,
  17. GEMCITABINE. [Suspect]
     Active Substance: GEMCITABINE
     Dosage: SIX CYCLES,
     Dates: start: 201204, end: 201308
  18. PEMETREXED. [Suspect]
     Active Substance: PEMETREXED
     Indication: PRODUCT USED FOR UNKNOWN INDICATION
     Dosage: 4 CYCLES,
     Route: 065

REACTIONS (4)
  - Hypoxia [Unknown]
  - Pyrexia [Unknown]
  - Lung infiltration [Unknown]
  - Cough [Unknown]
